FAERS Safety Report 7394042-4 (Version None)
Quarter: 2011Q2

REPORT INFORMATION
  Report Type: 
  Country: None (occurrence: None)
  Receive Date: 20110405
  Receipt Date: 20110118
  Transmission Date: 20111010
  Serious: No
  Sender: FDA-Public Use
  Company Number: US-AMGEN-USASP2011003321

PATIENT
  Age: 52 Year
  Sex: Female
  Weight: 62.132 kg

DRUGS (8)
  1. VITAMIN B6 [Concomitant]
     Dosage: 50 MG, QD
  2. NEULASTA [Suspect]
     Indication: CHEMOTHERAPY
     Dosage: 6 MG, UNK
     Route: 058
     Dates: start: 20101022
  3. NEULASTA [Suspect]
  4. CALCIUM 600 + D [Concomitant]
     Dosage: UNK UNK, QD
     Route: 048
  5. GLUCOSAMINE W/CHONDROITIN COMPLEX [Concomitant]
     Dosage: UNK UNK, BID
  6. MULTI-VITAMINS [Concomitant]
     Dosage: UNK UNK, QD
  7. DOXIL                              /00055703/ [Concomitant]
  8. COUMADIN [Concomitant]
     Dosage: 3 MG, QHS
     Route: 048

REACTIONS (7)
  - MALAISE [None]
  - LYMPHADENOPATHY [None]
  - NAUSEA [None]
  - LOCAL REACTION [None]
  - GLOSSODYNIA [None]
  - PYREXIA [None]
  - BONE PAIN [None]
